FAERS Safety Report 20910485 (Version 2)
Quarter: 2022Q2

REPORT INFORMATION
  Report Type: Spontaneous
  Country: US (occurrence: US)
  Receive Date: 20220603
  Receipt Date: 20220610
  Transmission Date: 20220721
  Serious: Yes (Other)
  Sender: FDA-Public Use
  Company Number: US-BAYER-2022A076700

PATIENT
  Age: 24 Year
  Sex: Female

DRUGS (2)
  1. ASPIRIN [Interacting]
     Active Substance: ASPIRIN
     Indication: Prophylaxis
     Dosage: UNK
  2. ENOXAPARIN [Interacting]
     Active Substance: ENOXAPARIN
     Indication: Prophylaxis

REACTIONS (5)
  - Haemorrhage in pregnancy [None]
  - Placenta praevia [None]
  - Myocardial infarction [None]
  - Coronary artery embolism [None]
  - Labelled drug-drug interaction medication error [None]
